FAERS Safety Report 5803581-6 (Version None)
Quarter: 2008Q3

REPORT INFORMATION
  Report Type: 
  Country: None (occurrence: None)
  Receive Date: 20080703
  Receipt Date: 20080618
  Transmission Date: 20090109
  Serious: Yes (Hospitalization, Other)
  Sender: FDA-Public Use
  Company Number: TNZIE200800101

PATIENT
  Age: 30 Year
  Sex: Female
  Weight: 68 kg

DRUGS (7)
  1. INNOHEP [Suspect]
     Indication: THROMBOSIS PROPHYLAXIS
     Dosage: (4500 IU, DAILY), SUBCUTANEOUS; (3500 IU, DAILY), SUBCUTANEOUS; (10324 IU, DAILY), SUBCUTANEOUS
     Route: 058
     Dates: start: 20070802, end: 20070803
  2. INNOHEP [Suspect]
     Indication: THROMBOSIS PROPHYLAXIS
     Dosage: (4500 IU, DAILY), SUBCUTANEOUS; (3500 IU, DAILY), SUBCUTANEOUS; (10324 IU, DAILY), SUBCUTANEOUS
     Route: 058
     Dates: start: 20070524, end: 20070816
  3. INNOHEP [Suspect]
     Indication: THROMBOSIS PROPHYLAXIS
     Dosage: (4500 IU, DAILY), SUBCUTANEOUS; (3500 IU, DAILY), SUBCUTANEOUS; (10324 IU, DAILY), SUBCUTANEOUS
     Route: 058
     Dates: start: 20070812, end: 20070816
  4. DEXAMETHASONE TAB [Concomitant]
  5. AUGMENTIN (AUGMENTIN /00756801/) [Concomitant]
  6. DEXAMETHASONE TAB [Concomitant]
  7. AUGMENTIN '125' [Concomitant]

REACTIONS (8)
  - ANTEPARTUM HAEMORRHAGE [None]
  - CAESAREAN SECTION [None]
  - DEEP VEIN THROMBOSIS [None]
  - DRUG EXPOSURE DURING PREGNANCY [None]
  - PERIPHERAL ISCHAEMIA [None]
  - PREMATURE LABOUR [None]
  - PREMATURE SEPARATION OF PLACENTA [None]
  - UTERINE CONTRACTIONS ABNORMAL [None]
